FAERS Safety Report 22314288 (Version 1)
Quarter: 2023Q2

REPORT INFORMATION
  Report Type: Spontaneous
  Country: US (occurrence: US)
  Receive Date: 20230512
  Receipt Date: 20230512
  Transmission Date: 20230721
  Serious: No
  Sender: FDA-Public Use
  Company Number: US-GSK-US2023063377

PATIENT
  Sex: Female

DRUGS (2)
  1. ADVAIR DISKUS [Suspect]
     Active Substance: FLUTICASONE PROPIONATE\SALMETEROL XINAFOATE
     Indication: Asthma
     Dosage: 250/50 2X^S A DAY
     Dates: start: 20230216, end: 20230420
  2. WIXELA INHUB [Concomitant]
     Active Substance: FLUTICASONE PROPIONATE\SALMETEROL XINAFOATE
     Indication: Asthma
     Dosage: 250/50 2X^S A DAY
     Dates: start: 20230216, end: 20230420

REACTIONS (3)
  - Lung disorder [Unknown]
  - Candida infection [Unknown]
  - Haemoptysis [Unknown]

NARRATIVE: CASE EVENT DATE: 20230414
